FAERS Safety Report 9932145 (Version 2)
Quarter: 2014Q1

REPORT INFORMATION
  Report Type: Spontaneous
  Country: US (occurrence: US)
  Receive Date: 20140228
  Receipt Date: 20140228
  Transmission Date: 20141002
  Serious: No
  Sender: FDA-Public Use
  Company Number: US-ABBVIE-13P-163-1157170-00

PATIENT
  Sex: Male
  Weight: 86.26 kg

DRUGS (4)
  1. ANDROGEL [Suspect]
     Indication: BLOOD TESTOSTERONE DECREASED
     Dosage: TWO PUMP ACTUATIONS
     Dates: start: 201309, end: 201310
  2. NEUPRO [Concomitant]
     Indication: RESTLESS LEGS SYNDROME
  3. AMBIEN [Concomitant]
     Indication: SLEEP DISORDER THERAPY
  4. PRAVASTATIN [Concomitant]
     Indication: BLOOD CHOLESTEROL INCREASED

REACTIONS (2)
  - Dermal absorption impaired [Not Recovered/Not Resolved]
  - Drug ineffective [Not Recovered/Not Resolved]
